FAERS Safety Report 5645210-0 (Version None)
Quarter: 2008Q1

REPORT INFORMATION
  Report Type: 
  Country: None (occurrence: None)
  Receive Date: 20080229
  Receipt Date: 20080211
  Transmission Date: 20080703
  Serious: No
  Sender: FDA-Public Use
  Company Number: US-BAYER-200717261NA

PATIENT
  Age: 60 Year
  Sex: Male

DRUGS (3)
  1. LEVITRA [Suspect]
     Indication: ERECTILE DYSFUNCTION
     Route: 048
     Dates: start: 20050101
  2. LEVITRA [Suspect]
     Dosage: TOTAL DAILY DOSE: 20 MG  UNIT DOSE: 20 MG
     Route: 048
     Dates: start: 20071225
  3. ASPIRIN [Concomitant]

REACTIONS (5)
  - DRUG EFFECT PROLONGED [None]
  - ERECTILE DYSFUNCTION [None]
  - FREQUENT BOWEL MOVEMENTS [None]
  - HALO VISION [None]
  - NASAL CONGESTION [None]
